FAERS Safety Report 5320999-9 (Version None)
Quarter: 2007Q2

REPORT INFORMATION
  Report Type: 
  Country: None (occurrence: None)
  Receive Date: 20070510
  Receipt Date: 20070503
  Transmission Date: 20071010
  Serious: Yes (Other)
  Sender: FDA-Public Use
  Company Number: PHFR2007GB01536

PATIENT
  Sex: Female

DRUGS (4)
  1. ZOMETA [Suspect]
     Indication: METASTASES TO BONE
     Route: 065
  2. MORPHINE SULFATE [Concomitant]
     Indication: BREAST CANCER
     Route: 065
  3. ANTIBIOTICS [Concomitant]
     Indication: PAIN
     Route: 065
  4. PAMIDRONATE DISODIUM [Suspect]
     Indication: METASTASES TO BONE
     Route: 065

REACTIONS (3)
  - INFECTION [None]
  - OSTEONECROSIS [None]
  - PAIN IN JAW [None]
